FAERS Safety Report 15201722 (Version 1)
Quarter: 2018Q3

REPORT INFORMATION
  Report Type: Spontaneous
  Country: US (occurrence: US)
  Receive Date: 20180627
  Receipt Date: 20180627
  Transmission Date: 20181010
  Serious: No
  Sender: FDA-Public Use
  Company Number: None

PATIENT

DRUGS (2)
  1. FENTANYL 2MCG/ML, 0.125% BUPIVACAINE PF IN 0.9% SODIUM CHLORIDE TOTAL [Suspect]
     Active Substance: BUPIVACAINE\FENTANYL
     Route: 008
     Dates: start: 20180425, end: 20180601
  2. FENTANYL 10MCG/ML IN 0.9% SODIUM CHLORIDE 2500MCG/250ML [Suspect]
     Active Substance: FENTANYL CITRATE
     Route: 041
     Dates: start: 20180517, end: 20180627

REACTIONS (1)
  - Product container issue [None]

NARRATIVE: CASE EVENT DATE: 20180627
